FAERS Safety Report 15088993 (Version 3)
Quarter: 2018Q3

REPORT INFORMATION
  Report Type: Spontaneous
  Country: US (occurrence: US)
  Receive Date: 20180629
  Receipt Date: 20180808
  Transmission Date: 20181010
  Serious: No
  Sender: FDA-Public Use
  Company Number: US-SA-2018SA169035

PATIENT
  Age: 22 Year
  Sex: Male

DRUGS (3)
  1. FISH OIL [Concomitant]
     Active Substance: FISH OIL
  2. DUPIXENT [Suspect]
     Active Substance: DUPILUMAB
     Indication: DERMATITIS ATOPIC
     Dosage: 300 MG, QOW
     Route: 058
     Dates: start: 20180703
  3. DESONIDE. [Concomitant]
     Active Substance: DESONIDE

REACTIONS (3)
  - Conjunctivitis [Unknown]
  - Dermatitis [Not Recovered/Not Resolved]
  - Drug dose omission [Unknown]
